FAERS Safety Report 4955870-5 (Version None)
Quarter: 2006Q1

REPORT INFORMATION
  Report Type: 
  Country: None (occurrence: None)
  Receive Date: 20060327
  Receipt Date: 20060327
  Transmission Date: 20060701
  Serious: Yes (Other)
  Sender: FDA-Public Use
  Company Number: None

PATIENT
  Sex: Male
  Weight: 91.0369 kg

DRUGS (11)
  1. PAROXETINE HCL [Suspect]
     Indication: DEPRESSION
     Dosage: 1 TAB DAILY
     Dates: start: 20050601, end: 20050704
  2. PAROXETINE HCL [Suspect]
     Indication: OBSESSIVE-COMPULSIVE DISORDER
     Dosage: 1 TAB DAILY
     Dates: start: 20050601, end: 20050704
  3. COMBIVENT [Concomitant]
  4. ALBUTEROL [Concomitant]
  5. ALPRAZOLAM [Concomitant]
  6. ATENOLOL [Concomitant]
  7. FLUNISOLIDE [Concomitant]
  8. HYDROCHLOROTHIAZIDE [Concomitant]
  9. IMIPRAMINE [Concomitant]
  10. LORATADINE [Concomitant]
  11. LOVASTATIN [Concomitant]

REACTIONS (2)
  - ANXIETY [None]
  - FEELING ABNORMAL [None]
